FAERS Safety Report 19645862 (Version 1)
Quarter: 2021Q3

REPORT INFORMATION
  Report Type: Spontaneous
  Country: US (occurrence: US)
  Receive Date: 20210802
  Receipt Date: 20210802
  Transmission Date: 20211014
  Serious: No
  Sender: FDA-Public Use
  Company Number: None

PATIENT
  Age: 71 Year
  Sex: Male
  Weight: 80.1 kg

DRUGS (12)
  1. ASPIRIN. [Concomitant]
     Active Substance: ASPIRIN
  2. HYDROXYUREA. [Concomitant]
     Active Substance: HYDROXYUREA
  3. MULTIVITAMIN [Concomitant]
     Active Substance: VITAMINS
  4. CETIRIZINE [Concomitant]
     Active Substance: CETIRIZINE HYDROCHLORIDE
  5. FLUTICASONE. [Concomitant]
     Active Substance: FLUTICASONE
  6. LOSARTAN. [Concomitant]
     Active Substance: LOSARTAN
  7. GLYBURIDE?METFORMIN [Concomitant]
  8. TYLENOL [Concomitant]
     Active Substance: ACETAMINOPHEN
  9. MYLERAN [Suspect]
     Active Substance: BUSULFAN
     Indication: ESSENTIAL THROMBOCYTHAEMIA
     Route: 048
     Dates: start: 20210420
  10. OMEGA 3 FA [Concomitant]
  11. AMLODIPINE [Concomitant]
     Active Substance: AMLODIPINE BESYLATE
  12. ASCORBIC ACID. [Concomitant]
     Active Substance: ASCORBIC ACID

REACTIONS (4)
  - Stomatitis [None]
  - Pain in extremity [None]
  - Peripheral swelling [None]
  - Oedema [None]

NARRATIVE: CASE EVENT DATE: 20210802
